FAERS Safety Report 16306693 (Version 2)
Quarter: 2019Q2

REPORT INFORMATION
  Report Type: Report from Study
  Country: MX (occurrence: MX)
  Receive Date: 20190513
  Receipt Date: 20190524
  Transmission Date: 20190711
  Serious: Yes (Other)
  Sender: FDA-Public Use
  Company Number: PHHY2019MX108726

PATIENT
  Sex: Male
  Weight: 65 kg

DRUGS (1)
  1. ENTRESTO [Suspect]
     Active Substance: SACUBITRIL\VALSARTAN
     Indication: HYPERTENSION
     Dosage: 0.5 DF (50 MG), BID (? TABLET IN THE MORNING AND 1/2 IN THE NIGHT)
     Route: 048

REACTIONS (4)
  - Product use in unapproved indication [Unknown]
  - Prescribed underdose [Unknown]
  - Blindness unilateral [Unknown]
  - Wrong technique in product usage process [Unknown]
